FAERS Safety Report 15122871 (Version 1)
Quarter: 2018Q3

REPORT INFORMATION
  Report Type: Spontaneous
  Country: US (occurrence: US)
  Receive Date: 20180613
  Receipt Date: 20180613
  Transmission Date: 20181010
  Serious: Yes (Disabling)
  Sender: FDA-Public Use
  Company Number: None

PATIENT
  Age: 50 Year
  Sex: Female
  Weight: 42.3 kg

DRUGS (12)
  1. BUDESONIDE. [Concomitant]
     Active Substance: BUDESONIDE
  2. LOW DOSE NALTREXONE [Concomitant]
     Active Substance: NALTREXONE
  3. PROBIOTIC [Concomitant]
     Active Substance: PROBIOTICS NOS
  4. MULTIVITAMIN [Concomitant]
     Active Substance: VITAMINS
  5. MAGNESIUM [Concomitant]
     Active Substance: MAGNESIUM
  6. CIPROFLOXACIN. [Suspect]
     Active Substance: CIPROFLOXACIN
     Indication: URINARY TRACT INFECTION
     Dosage: ?          QUANTITY:250 DF DOSAGE FORM;?
     Route: 048
     Dates: start: 20121029, end: 20121031
  7. ZYFLAMEND [Concomitant]
  8. MOLYBEDUM [Concomitant]
  9. VITAMIN D [Concomitant]
     Active Substance: CHOLECALCIFEROL
  10. ZINC. [Concomitant]
     Active Substance: ZINC
  11. AMINO ACIDS [Concomitant]
     Active Substance: AMINO ACIDS
  12. SELENIUM [Concomitant]
     Active Substance: SELENIUM

REACTIONS (24)
  - Burning sensation [None]
  - Tendon pain [None]
  - Dizziness [None]
  - Headache [None]
  - Weight decreased [None]
  - Fatigue [None]
  - Loss of personal independence in daily activities [None]
  - Muscle atrophy [None]
  - Autoimmune disorder [None]
  - Photophobia [None]
  - Food allergy [None]
  - Gait disturbance [None]
  - Muscular weakness [None]
  - Visual impairment [None]
  - Macular fibrosis [None]
  - Renal impairment [None]
  - Arthralgia [None]
  - Insomnia [None]
  - Hepatic enzyme increased [None]
  - Pain [None]
  - Platelet count decreased [None]
  - Muscle twitching [None]
  - Ear discomfort [None]
  - Colitis microscopic [None]

NARRATIVE: CASE EVENT DATE: 20121031
